FAERS Safety Report 12133422 (Version 1)
Quarter: 2016Q1

REPORT INFORMATION
  Report Type: Spontaneous
  Country: US (occurrence: US)
  Receive Date: 20160301
  Receipt Date: 20160301
  Transmission Date: 20160526
  Serious: Yes (Other)
  Sender: FDA-Public Use
  Company Number: US-TEVA-638743USA

PATIENT
  Sex: Female

DRUGS (3)
  1. COPAXONE [Suspect]
     Active Substance: GLATIRAMER ACETATE
     Indication: MULTIPLE SCLEROSIS
     Dosage: UNKNOWN FORM STRENGTH
  2. VITAMIN D [Concomitant]
     Active Substance: CHOLECALCIFEROL
     Indication: VITAMIN D DEFICIENCY
  3. TYSABRI [Concomitant]
     Active Substance: NATALIZUMAB

REACTIONS (4)
  - Multiple sclerosis relapse [Recovered/Resolved]
  - Central nervous system lesion [Unknown]
  - Seasonal affective disorder [Not Recovered/Not Resolved]
  - Asthenia [Not Recovered/Not Resolved]
